FAERS Safety Report 8536410-0 (Version None)
Quarter: 2012Q3

REPORT INFORMATION
  Report Type: 
  Country: None (occurrence: None)
  Receive Date: 20120725
  Receipt Date: 20120717
  Transmission Date: 20120928
  Serious: Yes (Hospitalization)
  Sender: FDA-Public Use
  Company Number: FR-ROCHE-1089028

PATIENT
  Age: 36 Year
  Sex: Male

DRUGS (7)
  1. PREDNISOLONE [Concomitant]
     Dates: start: 19960101
  2. PREVISCAN [Concomitant]
     Dates: start: 19960101
  3. CRESTOR [Concomitant]
     Dates: start: 19960101
  4. CELLCEPT [Suspect]
     Indication: PRODUCT USED FOR UNKNOWN INDICATION
     Route: 048
     Dates: start: 19960101
  5. ARTEX [Concomitant]
     Dates: start: 19960101
  6. DEDROGYL [Concomitant]
     Dates: start: 19960101
  7. RAMIPRIL [Concomitant]
     Dates: start: 19960101

REACTIONS (2)
  - EPIDURITIS [None]
  - ARTHRITIS [None]
